FAERS Safety Report 19218191 (Version 4)
Quarter: 2022Q4

REPORT INFORMATION
  Report Type: Spontaneous
  Country: US (occurrence: US)
  Receive Date: 20210502
  Receipt Date: 20221025
  Transmission Date: 20230113
  Serious: No
  Sender: FDA-Public Use
  Company Number: US-BRISTOL-MYERS SQUIBB COMPANY-BMS-2021-042417

PATIENT
  Age: 61 Year
  Sex: Female

DRUGS (1)
  1. ORENCIA [Suspect]
     Active Substance: ABATACEPT
     Indication: Rheumatoid arthritis
     Dosage: 125 MILLIGRAM, QWK?LOT-ACD3407 EXP 03/31/2024
     Route: 058
     Dates: start: 20180313

REACTIONS (6)
  - Joint swelling [Unknown]
  - Arthralgia [Unknown]
  - Pain [Unknown]
  - Pain in extremity [Unknown]
  - Pain in extremity [Unknown]
  - Pain [Unknown]
